FAERS Safety Report 8595307-0 (Version None)
Quarter: 2012Q3

REPORT INFORMATION
  Report Type: 
  Country: None (occurrence: None)
  Receive Date: 20120807
  Receipt Date: 20120807
  Transmission Date: 20120928
  Serious: Yes (Hospitalization)
  Sender: FDA-Public Use
  Company Number: None

PATIENT
  Sex: Male
  Weight: 68.6 kg

DRUGS (1)
  1. PEGINTERFERON ALFA-2B (PEG-INTRON) 211.36 MCG [Suspect]

REACTIONS (5)
  - ABDOMINAL PAIN [None]
  - VOMITING [None]
  - ANAEMIA [None]
  - NAUSEA [None]
  - INTESTINAL OBSTRUCTION [None]
